FAERS Safety Report 5584750-X (Version None)
Quarter: 2008Q1

REPORT INFORMATION
  Report Type: 
  Country: None (occurrence: None)
  Receive Date: 20080103
  Receipt Date: 20071219
  Transmission Date: 20080703
  Serious: Yes (Other)
  Sender: FDA-Public Use
  Company Number: 2007JP005609

PATIENT
  Age: 8 Month
  Sex: Female
  Weight: 6.6 kg

DRUGS (2)
  1. PROGRAF [Suspect]
     Indication: LIVER TRANSPLANT
  2. LEVOCARNITINE (LEVOCARNITINE) [Concomitant]

REACTIONS (5)
  - BASE EXCESS [None]
  - COMPARTMENT SYNDROME [None]
  - CONVULSION [None]
  - INTRA-ABDOMINAL HAEMORRHAGE [None]
  - METABOLIC ACIDOSIS [None]
